FAERS Safety Report 16404819 (Version 1)
Quarter: 2019Q2

REPORT INFORMATION
  Report Type: Spontaneous
  Country: JP (occurrence: JP)
  Receive Date: 20190607
  Receipt Date: 20190607
  Transmission Date: 20190711
  Serious: Yes (Hospitalization)
  Sender: FDA-Public Use
  Company Number: JP-JT-EVA201900112KERYXP-002

PATIENT
  Age: 74 Year
  Sex: Male
  Weight: 62.3 kg

DRUGS (31)
  1. INVESTIGATIONAL DRUG [Concomitant]
     Active Substance: INVESTIGATIONAL PRODUCT
     Dosage: 2 MILLIGRAM, QD
     Route: 048
     Dates: start: 20181101, end: 20181121
  2. CILNIDIPINE [Concomitant]
     Active Substance: CILNIDIPINE
     Indication: HYPERTENSION
     Dosage: 10 MILLIGRAM, Q12H
     Route: 048
     Dates: start: 20181121
  3. CARVEDILOL. [Concomitant]
     Active Substance: CARVEDILOL
     Indication: HYPERTENSION
     Dosage: 10 MILLIGRAM, Q12H
     Route: 048
     Dates: start: 20181219
  4. INVESTIGATIONAL DRUG [Concomitant]
     Active Substance: INVESTIGATIONAL PRODUCT
     Dosage: 2 MILLIGRAM, QD
     Route: 048
     Dates: start: 20180510, end: 20180606
  5. FEBURIC [Concomitant]
     Active Substance: FEBUXOSTAT
     Indication: HYPERURICAEMIA
     Dosage: 20 MILLIGRAM, QD
     Route: 048
     Dates: start: 20180315
  6. PRECIPITATED CALCIUM CARBONATE [Concomitant]
     Active Substance: CALCIUM CARBONATE
     Indication: HYPERPHOSPHATAEMIA
     Dosage: 500 MILLIGRAM, Q8H
     Route: 048
  7. INVESTIGATIONAL DRUG [Concomitant]
     Active Substance: INVESTIGATIONAL PRODUCT
     Dosage: 4 MILLIGRAM, QD
     Route: 048
     Dates: start: 20180412, end: 20180509
  8. HEPARINOID [Concomitant]
     Active Substance: CHONDROITIN SULFATE (BOVINE)
     Indication: PRURITUS
     Dosage: UNK
     Route: 003
  9. GENTAMICIN SULFATE. [Concomitant]
     Active Substance: GENTAMICIN SULFATE
     Indication: DEVICE RELATED INFECTION
     Dosage: UNK
     Route: 003
     Dates: start: 20181025
  10. RIONA [Suspect]
     Active Substance: FERRIC CITRATE ANHYDROUS
     Indication: HYPERPHOSPHATAEMIA
     Dosage: 500 MILLIGRAM, Q8H
     Route: 048
     Dates: start: 20181031
  11. INVESTIGATIONAL DRUG [Concomitant]
     Active Substance: INVESTIGATIONAL PRODUCT
     Dosage: 2 MILLIGRAM, QD
     Route: 048
     Dates: start: 20180705, end: 20180801
  12. INVESTIGATIONAL DRUG [Concomitant]
     Active Substance: INVESTIGATIONAL PRODUCT
     Dosage: 4 MILLIGRAM, QD
     Route: 048
     Dates: start: 20180802, end: 20181031
  13. CARDENALIN [Concomitant]
     Active Substance: DOXAZOSIN MESYLATE
     Indication: HYPERTENSION
     Dosage: 8 MILLIGRAM, QD
     Route: 048
     Dates: start: 20180606, end: 20190415
  14. BIOFERMIN R [Concomitant]
     Active Substance: DIETARY SUPPLEMENT\PROBIOTICS
     Indication: PROPHYLAXIS AGAINST DIARRHOEA
     Dosage: 1 GRAM, ONE DOSE
     Route: 048
     Dates: start: 20181101
  15. FUROSEMIDE. [Concomitant]
     Active Substance: FUROSEMIDE
     Indication: CHRONIC KIDNEY DISEASE
     Dosage: 120 MILLIGRAM, Q12H
     Route: 048
     Dates: start: 20181031
  16. ALFACALCIDOL [Concomitant]
     Active Substance: ALFACALCIDOL
     Indication: HYPERPARATHYROIDISM SECONDARY
     Dosage: 0.25 MICROGRAM, QD
     Route: 048
  17. PRECIPITATED CALCIUM CARBONATE [Concomitant]
     Active Substance: CALCIUM CARBONATE
     Route: 048
  18. REMITCH [Concomitant]
     Active Substance: NALFURAFINE HYDROCHLORIDE
     Indication: PRURITUS
     Dosage: 2.5 MICROGRAM, QD
     Route: 048
     Dates: start: 20180214
  19. VICCILLIN                          /00000503/ [Concomitant]
     Indication: DEVICE RELATED INFECTION
     Dosage: 250 MILLIGRAM, Q12H
     Route: 048
     Dates: start: 20181226
  20. INVESTIGATIONAL DRUG [Concomitant]
     Active Substance: INVESTIGATIONAL PRODUCT
     Indication: NEPHROGENIC ANAEMIA
     Dosage: 2 MILLIGRAM, QD
     Route: 048
     Dates: start: 20180314, end: 20180411
  21. TRIAZOLAM. [Concomitant]
     Active Substance: TRIAZOLAM
     Indication: INSOMNIA
     Dosage: 0.125 MILLIGRAM, QD
     Route: 048
  22. KETOPROFEN. [Concomitant]
     Active Substance: KETOPROFEN
     Indication: BACK PAIN
     Dosage: 40 MILLIGRAM; ONE DOSE
     Route: 062
     Dates: start: 20180609
  23. INVESTIGATIONAL DRUG [Concomitant]
     Active Substance: INVESTIGATIONAL PRODUCT
     Dosage: 1 MILLIGRAM, QD
     Route: 048
     Dates: start: 20180607, end: 20180704
  24. INVESTIGATIONAL DRUG [Concomitant]
     Active Substance: INVESTIGATIONAL PRODUCT
     Dosage: 1 MILLIGRAM, QD
     Route: 048
     Dates: start: 20181122, end: 20190313
  25. AZILVA [Concomitant]
     Active Substance: AZILSARTAN KAMEDOXOMIL
     Indication: HYPERTENSION
     Dosage: 20 MILLIGRAM, Q12H
     Route: 048
  26. TENELIA [Concomitant]
     Active Substance: TENELIGLIPTIN
     Indication: TYPE 2 DIABETES MELLITUS
     Dosage: 20 MILLIGRAM, QD
     Route: 048
     Dates: start: 20180315
  27. ADALAT [Concomitant]
     Active Substance: NIFEDIPINE
     Indication: HYPERTENSION
     Dosage: 10 MILLIGRAM, ONE TIME DOSE
     Route: 048
  28. DERMOVATE [Concomitant]
     Active Substance: CLOBETASOL
     Indication: ECZEMA
     Dosage: UNK
     Route: 003
     Dates: start: 20180511
  29. NIFEDIPINE. [Concomitant]
     Active Substance: NIFEDIPINE
     Indication: HYPERTENSION
     Dosage: 40 MILLIGRAM, Q12H
     Route: 048
  30. NEXIUM [Concomitant]
     Active Substance: ESOMEPRAZOLE MAGNESIUM
     Indication: GASTROOESOPHAGEAL REFLUX DISEASE
     Dosage: 20 MILLIGRAM, QD
     Route: 048
  31. NERISONA [Concomitant]
     Active Substance: DIFLUCORTOLONE VALERATE
     Indication: PRURITUS
     Dosage: UNK
     Route: 003

REACTIONS (1)
  - Device related infection [Recovering/Resolving]

NARRATIVE: CASE EVENT DATE: 20190318
